FAERS Safety Report 14768533 (Version 1)
Quarter: 2018Q2

REPORT INFORMATION
  Report Type: Spontaneous
  Country: IT (occurrence: IT)
  Receive Date: 20180417
  Receipt Date: 20180417
  Transmission Date: 20180711
  Serious: Yes (Other)
  Sender: FDA-Public Use
  Company Number: IT-PFIZER INC-2017237373

PATIENT
  Age: 91 Year
  Sex: Female

DRUGS (5)
  1. NORMIX [Concomitant]
     Active Substance: RIFAXIMIN
     Dosage: UNK
  2. PANTOPAN [Concomitant]
     Active Substance: PANTOPRAZOLE SODIUM
     Dosage: UNK
  3. EUTIROX [Concomitant]
     Active Substance: LEVOTHYROXINE SODIUM
     Dosage: UNK
  4. NEULEPTIL /00038401/ [Suspect]
     Active Substance: PERICIAZINE
     Indication: PSYCHOTIC DISORDER
     Dosage: 1 DF, 1X/DAY
     Route: 048
  5. XANAX [Suspect]
     Active Substance: ALPRAZOLAM
     Indication: ANXIETY
     Dosage: 1 DF, 1X/DAY
     Route: 048

REACTIONS (8)
  - Disorientation [Recovering/Resolving]
  - Paranoia [Recovering/Resolving]
  - Delusion [Recovering/Resolving]
  - Dementia [Recovering/Resolving]
  - Delirium [Recovering/Resolving]
  - Hallucination [Recovering/Resolving]
  - Condition aggravated [Recovering/Resolving]
  - Paradoxical drug reaction [Recovering/Resolving]

NARRATIVE: CASE EVENT DATE: 20170514
